FAERS Safety Report 8397840-3 (Version None)
Quarter: 2012Q2

REPORT INFORMATION
  Report Type: 
  Country: None (occurrence: None)
  Receive Date: 20120524
  Receipt Date: 20120514
  Transmission Date: 20120825
  Serious: No
  Sender: FDA-Public Use
  Company Number: 2012SP025752

PATIENT
  Age: 40 Year
  Sex: Male

DRUGS (4)
  1. TEGRETOL [Concomitant]
  2. SAPHRIS [Suspect]
     Indication: SCHIZOAFFECTIVE DISORDER
     Dosage: 10 MG;HS;SL
     Route: 060
  3. ZYPREXA [Concomitant]
  4. BENZTROPINE MESYLATE [Concomitant]

REACTIONS (2)
  - PRURITUS GENERALISED [None]
  - URINARY RETENTION [None]
